FAERS Safety Report 7288377-3 (Version None)
Quarter: 2011Q1

REPORT INFORMATION
  Report Type: 
  Country: None (occurrence: None)
  Receive Date: 20110211
  Receipt Date: 20110207
  Transmission Date: 20110831
  Serious: Yes (Other)
  Sender: FDA-Public Use
  Company Number: GB-ROCHE-757898

PATIENT

DRUGS (6)
  1. VANCOMYCIN [Suspect]
     Indication: INFECTION
     Route: 042
  2. MEROPENEM [Suspect]
     Indication: INFECTION
     Route: 042
  3. TEICOPLANIN [Suspect]
     Indication: INFECTION
     Route: 042
  4. AMOXICILLIN [Suspect]
     Indication: INFECTION
     Route: 042
  5. CEFTRIAXONE SODIUM [Suspect]
     Indication: INFECTION
     Dosage: FREQUENCY: ONCE DAILY
     Route: 042
  6. PIPERACILLIN/TAZOBACTAM [Suspect]
     Indication: INFECTION
     Route: 042

REACTIONS (8)
  - PYREXIA [None]
  - RENAL FAILURE ACUTE [None]
  - TREATMENT FAILURE [None]
  - VOMITING [None]
  - LEUKOPENIA [None]
  - TINNITUS [None]
  - RASH [None]
  - THROMBOCYTOPENIA [None]
